FAERS Safety Report 13552080 (Version 3)
Quarter: 2017Q4

REPORT INFORMATION
  Report Type: Report from Study
  Country: TR (occurrence: TR)
  Receive Date: 20170516
  Receipt Date: 20171116
  Transmission Date: 20180320
  Serious: Yes (Death, Other)
  Sender: FDA-Public Use
  Company Number: TR-GILEAD-2017-0258662

PATIENT
  Age: 78 Year
  Sex: Male
  Weight: 86 kg

DRUGS (7)
  1. DIATONA [Concomitant]
     Dosage: 2 DF, QD
  2. BETANORM                           /00141802/ [Concomitant]
     Dosage: 1 DF, QD
  3. TENOFOVIR DISOPROXIL FUMARATE. [Suspect]
     Active Substance: TENOFOVIR DISOPROXIL FUMARATE
     Indication: HEPATITIS B
     Dosage: UNK
     Route: 065
     Dates: start: 20120106
  4. ESMOX [Concomitant]
     Dosage: 2 DF, QD
  5. VASOSERC [Concomitant]
     Dosage: 3 DF, QD
  6. CARDURA [Concomitant]
     Active Substance: DOXAZOSIN MESYLATE
     Dosage: 1 DF, QD
  7. LOSAR                              /00661201/ [Concomitant]
     Dosage: 1 DF, QD

REACTIONS (2)
  - Lung infection [Fatal]
  - Blood creatinine increased [Unknown]
